FAERS Safety Report 7310582-8 (Version None)
Quarter: 2011Q1

REPORT INFORMATION
  Report Type: 
  Country: None (occurrence: None)
  Receive Date: 20110224
  Receipt Date: 20100218
  Transmission Date: 20110831
  Serious: No
  Sender: FDA-Public Use
  Company Number: US-BRISTOL-MYERS SQUIBB COMPANY-14983324

PATIENT
  Age: 68 Year
  Sex: Male
  Weight: 83 kg

DRUGS (2)
  1. GLUCOPHAGE [Suspect]
     Indication: TYPE 2 DIABETES MELLITUS
     Dates: start: 20100201, end: 20100201
  2. ASPIRIN [Concomitant]

REACTIONS (1)
  - DIARRHOEA [None]
